FAERS Safety Report 9194165 (Version 2)
Quarter: 2013Q3

REPORT INFORMATION
  Report Type: Report from Study
  Country: BR (occurrence: BR)
  Receive Date: 20130327
  Receipt Date: 20130823
  Transmission Date: 20140515
  Serious: Yes (Other)
  Sender: FDA-Public Use
  Company Number: PHHY2013BR028601

PATIENT
  Sex: Male

DRUGS (3)
  1. GALVUS [Suspect]
     Indication: DIABETES MELLITUS
     Dosage: 50 MG, QD
     Dates: start: 1997
  2. GALVUS [Suspect]
     Dosage: UNK UKN, UNK
  3. DIOVAN [Suspect]
     Indication: BLOOD PRESSURE ABNORMAL
     Dosage: 320 MG, QD

REACTIONS (7)
  - Infarction [Unknown]
  - Coma [Unknown]
  - Venous occlusion [Unknown]
  - Diabetes mellitus [Unknown]
  - Gait disturbance [Unknown]
  - Weight increased [Unknown]
  - Local swelling [Unknown]
